FAERS Safety Report 5956128-8 (Version None)
Quarter: 2008Q4

REPORT INFORMATION
  Report Type: 
  Country: None (occurrence: None)
  Receive Date: 20081112
  Receipt Date: 20081107
  Transmission Date: 20090506
  Serious: Yes (Other)
  Sender: FDA-Public Use
  Company Number: APP200801095

PATIENT
  Age: 69 Year
  Sex: Female
  Weight: 68.7 kg

DRUGS (13)
  1. HEPARIN SODIUM INJECTION [Suspect]
     Indication: PHOTOPHERESIS
     Dosage: 4860 USP UNITS, ONCE, INTRAVENOUS
     Route: 042
     Dates: start: 20081106, end: 20081106
  2. PROTONIX [Concomitant]
  3. PREDNISONE [Concomitant]
  4. PROGRAF [Concomitant]
  5. VFEND [Concomitant]
  6. ZOLOFT [Concomitant]
  7. TOPROL-XL [Concomitant]
  8. MAGNESIUM(MAGNESIUM) [Concomitant]
  9. MULTIVITAMIN [Concomitant]
  10. ACTIGALL [Concomitant]
  11. LORAZEPAM [Concomitant]
  12. DOXEPIN HCL [Concomitant]
  13. RESTORIL [Concomitant]

REACTIONS (3)
  - ACTIVATED PARTIAL THROMBOPLASTIN TIME PROLONGED [None]
  - EYE HAEMORRHAGE [None]
  - HAEMORRHAGE [None]
